FAERS Safety Report 18966062 (Version 1)
Quarter: 2021Q1

REPORT INFORMATION
  Report Type: Spontaneous
  Country: IR (occurrence: IR)
  Receive Date: 20210303
  Receipt Date: 20210303
  Transmission Date: 20210420
  Serious: Yes (Other)
  Sender: FDA-Public Use
  Company Number: IR-GLAXOSMITHKLINE-IR2021GSK052000

PATIENT
  Sex: Male
  Weight: 2.6 kg

DRUGS (10)
  1. METRONIDAZOLE. [Suspect]
     Active Substance: METRONIDAZOLE
     Indication: EAR PAIN
     Dosage: UNK
     Route: 064
     Dates: start: 20200309
  2. METRONIDAZOLE. [Suspect]
     Active Substance: METRONIDAZOLE
     Indication: TOOTH ABSCESS
  3. BECLOMETHASONE [Suspect]
     Active Substance: BECLOMETHASONE
     Indication: ASTHMA
     Dosage: UNK
     Route: 064
     Dates: start: 20200319
  4. CO?AMOXICLAV [Suspect]
     Active Substance: AMOXICILLIN\CLAVULANATE POTASSIUM
     Indication: OROPHARYNGEAL PAIN
  5. SALBUTAMOL [Suspect]
     Active Substance: ALBUTEROL
     Indication: ASTHMA
     Route: 064
  6. VITAMIN K1 [Concomitant]
     Active Substance: PHYTONADIONE
     Indication: PRODUCT USED FOR UNKNOWN INDICATION
     Dosage: UNK
  7. CO?AMOXICLAV [Suspect]
     Active Substance: AMOXICILLIN\CLAVULANATE POTASSIUM
     Indication: TOOTH ABSCESS
  8. CO?AMOXICLAV [Suspect]
     Active Substance: AMOXICILLIN\CLAVULANATE POTASSIUM
     Indication: EAR PAIN
     Dosage: UNK
     Route: 064
     Dates: start: 20200309
  9. METRONIDAZOLE. [Suspect]
     Active Substance: METRONIDAZOLE
     Indication: OROPHARYNGEAL PAIN
  10. ACETAMINOPHEN. [Suspect]
     Active Substance: ACETAMINOPHEN
     Indication: PRODUCT USED FOR UNKNOWN INDICATION
     Dosage: UNK
     Route: 064
     Dates: start: 20200309

REACTIONS (3)
  - Foetal exposure during pregnancy [Unknown]
  - Premature baby [Unknown]
  - Tachycardia foetal [Unknown]
